FAERS Safety Report 4505339-7 (Version None)
Quarter: 2004Q4

REPORT INFORMATION
  Report Type: 
  Country: None (occurrence: None)
  Receive Date: 20041117
  Receipt Date: 20041109
  Transmission Date: 20050328
  Serious: Yes (Death, Hospitalization)
  Sender: FDA-Public Use
  Company Number: 2004AC00748

PATIENT
  Age: 73 Year
  Sex: Female

DRUGS (7)
  1. CRESTOR [Suspect]
     Dosage: 40 MG DAILY PO
     Route: 048
     Dates: start: 20030901, end: 20040229
  2. EZETROL [Concomitant]
  3. EFFEXOR [Concomitant]
  4. PANTOZOL [Concomitant]
  5. NORFLOXACIN [Concomitant]
  6. REMERON [Concomitant]
  7. NEUROLEPTICS [Concomitant]

REACTIONS (24)
  - ABDOMINAL PAIN [None]
  - BLOOD BILIRUBIN INCREASED [None]
  - BLOOD CALCIUM DECREASED [None]
  - BLOOD GLUCOSE INCREASED [None]
  - BLOOD LACTIC ACID INCREASED [None]
  - CONFUSIONAL STATE [None]
  - DIARRHOEA [None]
  - GENERAL PHYSICAL HEALTH DETERIORATION [None]
  - HAEMOGLOBIN DECREASED [None]
  - HYPERTONIA [None]
  - HYPOKALAEMIA [None]
  - HYPONATRAEMIA [None]
  - HYPOTENSION [None]
  - IMPAIRED SELF-CARE [None]
  - MALAISE [None]
  - NAUSEA [None]
  - NEUROLEPTIC MALIGNANT SYNDROME [None]
  - NEUROLOGICAL SYMPTOM [None]
  - RHABDOMYOLYSIS [None]
  - SHIFT TO THE LEFT [None]
  - SINUS TACHYCARDIA [None]
  - SOPOR [None]
  - VOMITING [None]
  - WHITE BLOOD CELL COUNT INCREASED [None]
